FAERS Safety Report 5153345-4 (Version None)
Quarter: 2006Q4

REPORT INFORMATION
  Report Type: 
  Country: None (occurrence: None)
  Receive Date: 20061117
  Receipt Date: 20061109
  Transmission Date: 20070319
  Serious: Yes (Hospitalization)
  Sender: FDA-Public Use
  Company Number: AU-BAYER-200615696GDS

PATIENT
  Age: 11 Year
  Sex: Male

DRUGS (1)
  1. PRAZIQUANTEL [Suspect]
     Indication: SCHISTOSOMIASIS
     Dosage: TOTAL DAILY DOSE: 20 MG/KG
     Route: 048

REACTIONS (13)
  - ABDOMINAL TENDERNESS [None]
  - COORDINATION ABNORMAL [None]
  - COUGH [None]
  - EOSINOPHILIA [None]
  - HEPATOSPLENOMEGALY [None]
  - INTENTION TREMOR [None]
  - LYMPHADENOPATHY [None]
  - MALAISE [None]
  - PYREXIA [None]
  - RESPIRATORY DISTRESS [None]
  - URTICARIA [None]
  - VISUAL DISTURBANCE [None]
  - WHEEZING [None]
